FAERS Safety Report 9000690 (Version 1)
Quarter: 2012Q4

REPORT INFORMATION
  Report Type: Spontaneous
  Country: IT (occurrence: None)
  Receive Date: 20121226
  Receipt Date: 20121226
  Transmission Date: 20130627
  Serious: Yes (Hospitalization)
  Sender: FDA-Public Use
  Company Number: AG-2012-2070

PATIENT
  Age: 42 Year
  Sex: Female

DRUGS (4)
  1. BUSULFAN [Suspect]
     Indication: PRODUCT USED FOR UNKNOWN INDICATION
     Dosage: 240 milligram (240 milligram, 1 in 1 days), Intravenouis (not otherwise specified)
     Route: 042
     Dates: start: 20121029, end: 20121101
  2. CYCLOPHOSPHAMIDE [Suspect]
     Dosage: 4600 milligram (4600 milligram, 1 in 1 days), Intravenous (not otherwise specified)
     Route: 042
     Dates: start: 20121103, end: 20121104
  3. FOSCAVIR (FOSCARNET) [Concomitant]
  4. AMBISOME (AMPHOTERICAN B) [Concomitant]

REACTIONS (2)
  - Renal failure [None]
  - Dialysis [None]
